FAERS Safety Report 12801731 (Version 4)
Quarter: 2017Q2

REPORT INFORMATION
  Report Type: Spontaneous
  Country: US (occurrence: US)
  Receive Date: 20161003
  Receipt Date: 20170412
  Transmission Date: 20170830
  Serious: No
  Sender: FDA-Public Use
  Company Number: US-PFIZER INC-2016458614

PATIENT
  Age: 60 Year
  Sex: Female
  Weight: 56.69 kg

DRUGS (3)
  1. SUTENT [Suspect]
     Active Substance: SUNITINIB MALATE
     Indication: GASTROINTESTINAL STROMAL TUMOUR
     Dosage: 37.5 MG, CYCLIC (DAYS 1-28 Q42 DAYS)
     Route: 048
     Dates: start: 20160701
  2. SUTENT [Suspect]
     Active Substance: SUNITINIB MALATE
     Dosage: 25 MG, CYCLIC (DAYS 1-28 Q42 DAYS)
     Route: 048
     Dates: start: 20160601
  3. SUTENT [Suspect]
     Active Substance: SUNITINIB MALATE
     Dosage: 25 MG, CYCLIC (D 1-21 Q 28 DAYS)
     Route: 048
     Dates: start: 20160701, end: 20170228

REACTIONS (13)
  - Depression [Unknown]
  - Headache [Unknown]
  - Vomiting [Unknown]
  - Pain in extremity [Unknown]
  - Tongue discomfort [Unknown]
  - Nausea [Unknown]
  - Musculoskeletal pain [Unknown]
  - Oral herpes [Unknown]
  - Burning sensation [Unknown]
  - Constipation [Unknown]
  - Ageusia [Unknown]
  - Stomatitis [Unknown]
  - Dizziness [Unknown]
